FAERS Safety Report 7127259-4 (Version None)
Quarter: 2010Q4

REPORT INFORMATION
  Report Type: 
  Country: None (occurrence: None)
  Receive Date: 20101129
  Receipt Date: 20101112
  Transmission Date: 20110411
  Serious: Yes (Hospitalization)
  Sender: FDA-Public Use
  Company Number: US-AMGEN-KDL435578

PATIENT

DRUGS (10)
  1. NEULASTA [Suspect]
     Indication: CHEMOTHERAPY
     Dosage: 6 MG, UNK
     Dates: start: 20100721
  2. DOXORUBICIN HCL [Concomitant]
     Dosage: UNK UNK, Q3WK
     Dates: start: 20100424
  3. CYCLOPHOSPHAMIDE [Concomitant]
     Dosage: UNK, Q3WK
     Dates: start: 20100424
  4. DOCETAXEL [Concomitant]
     Dosage: UNK, Q3WK
     Dates: start: 20100424
  5. FLEXERIL [Concomitant]
  6. MORPHINE [Concomitant]
  7. PAXIL [Concomitant]
  8. PROPRANOLOL [Concomitant]
  9. ZANTAC                             /00550801/ [Concomitant]
  10. SCOPOLAMINE [Concomitant]

REACTIONS (8)
  - ASTHENIA [None]
  - DIARRHOEA [None]
  - FEBRILE NEUTROPENIA [None]
  - NAUSEA [None]
  - PYREXIA [None]
  - SALMONELLA TEST POSITIVE [None]
  - STREPTOCOCCAL BACTERAEMIA [None]
  - VOMITING [None]
